FAERS Safety Report 7783555-9 (Version None)
Quarter: 2011Q3

REPORT INFORMATION
  Report Type: 
  Country: None (occurrence: None)
  Receive Date: 20110928
  Receipt Date: 20110613
  Transmission Date: 20111222
  Serious: No
  Sender: FDA-Public Use
  Company Number: US-MYLANLABS-2011S1012446

PATIENT
  Age: 54 Year
  Sex: Female

DRUGS (5)
  1. M.V.I. [Concomitant]
  2. CALCIUM WITH VITAMIN D [Concomitant]
  3. LETROZOLE [Suspect]
     Indication: ADJUVANT THERAPY
     Dates: start: 20110527, end: 20110531
  4. VITAMIN D [Concomitant]
  5. VERAPAMIL [Concomitant]
     Indication: TACHYCARDIA

REACTIONS (12)
  - PNEUMONIA [None]
  - COGNITIVE DISORDER [None]
  - WHEEZING [None]
  - FACE OEDEMA [None]
  - DECREASED APPETITE [None]
  - REACTION TO DRUG EXCIPIENTS [None]
  - PULMONARY CONGESTION [None]
  - NASAL CONGESTION [None]
  - DYSPHONIA [None]
  - URTICARIA [None]
  - WEIGHT DECREASED [None]
  - PALPITATIONS [None]
